FAERS Safety Report 5119338-8 (Version None)
Quarter: 2006Q4

REPORT INFORMATION
  Report Type: 
  Country: None (occurrence: None)
  Receive Date: 20061003
  Receipt Date: 20060515
  Transmission Date: 20070319
  Serious: Yes (Other)
  Sender: FDA-Public Use
  Company Number: DEWYE620115MAY06

PATIENT
  Sex: Female
  Weight: 125 kg

DRUGS (13)
  1. ENBREL [Suspect]
     Indication: RHEUMATOID ARTHRITIS
     Route: 058
     Dates: start: 20050629, end: 20060504
  2. METHOTREXATE [Suspect]
     Route: 048
     Dates: start: 20050629, end: 20060504
  3. PREDNISOLONE [Concomitant]
  4. CALCIUM GLUCONATE [Concomitant]
  5. COLECALCIFEROL [Concomitant]
  6. PANTOPRAZOLE SODIUM [Concomitant]
  7. TRIAMTERENE AND HYDROCHLOROTHIAZIDE [Concomitant]
  8. VERAPAMIL [Concomitant]
  9. MAGNESIUM [Concomitant]
  10. FOLIC ACID [Concomitant]
  11. CANDESARTAN [Concomitant]
  12. NOVALGIN [Concomitant]
     Route: 065
  13. THEOPHYLLINE [Concomitant]
     Route: 065

REACTIONS (1)
  - RENAL FAILURE [None]
